FAERS Safety Report 5938010-5 (Version None)
Quarter: 2008Q4

REPORT INFORMATION
  Report Type: 
  Country: None (occurrence: None)
  Receive Date: 20081031
  Receipt Date: 20081024
  Transmission Date: 20090506
  Serious: Yes (Hospitalization, Other)
  Sender: FDA-Public Use
  Company Number: US-AMGEN-QUU312385

PATIENT
  Sex: Female

DRUGS (2)
  1. ENBREL [Suspect]
     Indication: RHEUMATOID ARTHRITIS
     Route: 058
     Dates: start: 20041021
  2. ENBREL [Suspect]
     Indication: SPONDYLOARTHROPATHY

REACTIONS (8)
  - AMNIOTIC FLUID INDEX ABNORMAL [None]
  - ARTHRALGIA [None]
  - BACK PAIN [None]
  - CHEST PAIN [None]
  - NIGHT SWEATS [None]
  - PYREXIA [None]
  - RASH [None]
  - SPONDYLOARTHROPATHY [None]
